FAERS Safety Report 11354252 (Version 1)
Quarter: 2015Q3

REPORT INFORMATION
  Report Type: Spontaneous
  Country: US (occurrence: US)
  Receive Date: 20150807
  Receipt Date: 20150807
  Transmission Date: 20151125
  Serious: No
  Sender: FDA-Public Use
  Company Number: US-JNJFOC-20150705359

PATIENT
  Sex: Female

DRUGS (1)
  1. SUDAFED CONGESTION MS [Suspect]
     Active Substance: PSEUDOEPHEDRINE HYDROCHLORIDE
     Indication: SINUS HEADACHE
     Route: 065

REACTIONS (2)
  - Therapeutic response unexpected [Unknown]
  - Product use issue [Unknown]
